FAERS Safety Report 6646882-4 (Version None)
Quarter: 2010Q1

REPORT INFORMATION
  Report Type: 
  Country: None (occurrence: None)
  Receive Date: 20100318
  Receipt Date: 20100305
  Transmission Date: 20100710
  Serious: Yes (Other)
  Sender: FDA-Public Use
  Company Number: AUR-APL-2010-00777

PATIENT
  Sex: Female

DRUGS (2)
  1. CEFADROXIL [Suspect]
     Dosage: 500MG
  2. CYCLOBENZAPRINE [Suspect]
     Dosage: 10MG

REACTIONS (3)
  - CONFUSIONAL STATE [None]
  - CORRECTIVE LENS USER [None]
  - VISUAL IMPAIRMENT [None]
